FAERS Safety Report 8805396 (Version 1)
Quarter: 2012Q4

REPORT INFORMATION
  Report Type: 
  Country: US (occurrence: None)
  Receive Date: 20120918
  Receipt Date: 20120918
  Transmission Date: 20130627
  Serious: Yes (Hospitalization)
  Sender: FDA-Public Use
  Company Number: None

PATIENT
  Sex: Male
  Weight: 87.3 kg

DRUGS (6)
  1. CYTARABINE [Suspect]
  2. ETOPOSIDE [Suspect]
  3. IFOSFAMIDE [Suspect]
  4. MESNA [Suspect]
  5. METHOTREXATE [Suspect]
  6. RITUXIMAB [Suspect]

REACTIONS (1)
  - Staphylococcal infection [None]
